FAERS Safety Report 5494746-4 (Version None)
Quarter: 2007Q4

REPORT INFORMATION
  Report Type: 
  Country: None (occurrence: None)
  Receive Date: 20071023
  Receipt Date: 20071023
  Transmission Date: 20080405
  Serious: No
  Sender: FDA-Public Use
  Company Number: None

PATIENT
  Age: 59 Year
  Sex: Male

DRUGS (1)
  1. MIRTAZAPINE [Suspect]
     Indication: DEPRESSION
     Dosage: 7.5MG EVERY DAY PO
     Route: 048
     Dates: start: 20070601, end: 20070606

REACTIONS (3)
  - AGITATION [None]
  - ANGER [None]
  - IRRITABILITY [None]
